FAERS Safety Report 18451934 (Version 1)
Quarter: 2020Q4

REPORT INFORMATION
  Report Type: Spontaneous
  Country: US (occurrence: US)
  Receive Date: 20201030
  Receipt Date: 20201030
  Transmission Date: 20210114
  Serious: Yes (Other)
  Sender: FDA-Public Use
  Company Number: None

PATIENT
  Age: 41 Year
  Sex: Male
  Weight: 76.5 kg

DRUGS (1)
  1. LEMTRADA [Suspect]
     Active Substance: ALEMTUZUMAB
     Indication: MULTIPLE SCLEROSIS
     Dosage: ?          OTHER FREQUENCY:DAILY X5DAYS;?
     Route: 042
     Dates: start: 20201026, end: 20201030

REACTIONS (2)
  - Infusion related reaction [None]
  - Hypertension [None]

NARRATIVE: CASE EVENT DATE: 20201030
